FAERS Safety Report 4869545-4 (Version None)
Quarter: 2005Q4

REPORT INFORMATION
  Report Type: 
  Country: None (occurrence: None)
  Receive Date: 20051227
  Receipt Date: 20051212
  Transmission Date: 20060501
  Serious: Yes (Other)
  Sender: FDA-Public Use
  Company Number: DE-JNJFOC-20040902388

PATIENT
  Age: 10 Year
  Sex: Female

DRUGS (1)
  1. CONCERTA [Suspect]
     Indication: ATTENTION DEFICIT/HYPERACTIVITY DISORDER
     Dosage: 36 MG, IN 1 DAY, ORAL
     Route: 048
     Dates: start: 20040211, end: 20040618

REACTIONS (1)
  - WEIGHT DECREASED [None]
